FAERS Safety Report 8137874-7 (Version None)
Quarter: 2012Q1

REPORT INFORMATION
  Report Type: 
  Country: None (occurrence: None)
  Receive Date: 20120215
  Receipt Date: 20120201
  Transmission Date: 20120608
  Serious: Yes (Life-Threatening, Hospitalization)
  Sender: FDA-Public Use
  Company Number: ES-CELGENEUS-144-21880-11083182

PATIENT
  Sex: Female
  Weight: 73.2 kg

DRUGS (6)
  1. DEXAMETHASONE [Suspect]
     Dosage: 20 MILLIGRAM
     Route: 065
     Dates: start: 20110704
  2. DEXAMETHASONE [Suspect]
     Dosage: 20 MILLIGRAM
     Route: 065
     Dates: start: 20110802
  3. REVLIMID [Suspect]
     Dosage: 2.5 MILLIGRAM
     Route: 048
     Dates: start: 20110704
  4. REVLIMID [Suspect]
     Route: 048
     Dates: start: 20120113, end: 20120113
  5. DEXAMETHASONE [Suspect]
     Dosage: 20 MILLIGRAM
     Route: 065
     Dates: start: 20120113, end: 20120113
  6. REVLIMID [Suspect]
     Route: 048
     Dates: start: 20110802

REACTIONS (1)
  - PYREXIA [None]
